FAERS Safety Report 21229100 (Version 5)
Quarter: 2023Q4

REPORT INFORMATION
  Report Type: Report from Study
  Country: CO (occurrence: CO)
  Receive Date: 20220818
  Receipt Date: 20231010
  Transmission Date: 20240110
  Serious: Yes (Hospitalization)
  Sender: FDA-Public Use
  Company Number: CO-ABBVIE-22K-036-4503770-00

PATIENT
  Age: 63 Year
  Sex: Female
  Weight: 53 kg

DRUGS (3)
  1. HUMIRA [Suspect]
     Active Substance: ADALIMUMAB
     Indication: Crohn^s disease
     Dosage: FORM STRENGTH WAS 40 MILLIGRAMS
     Route: 058
     Dates: start: 20210317, end: 20230210
  2. HUMIRA [Suspect]
     Active Substance: ADALIMUMAB
     Dosage: FORM STRENGTH WAS 40 MILLIGRAMS
     Route: 058
     Dates: start: 20230410
  3. HUMIRA [Suspect]
     Active Substance: ADALIMUMAB
     Dosage: DOSE INCREASED?FORM STRENGTH WAS 40 MILLIGRAMS
     Route: 058
     Dates: start: 20230721, end: 20230804

REACTIONS (21)
  - Cough [Recovering/Resolving]
  - Discouragement [Recovering/Resolving]
  - Insomnia [Recovered/Resolved]
  - Bronchiolitis [Recovering/Resolving]
  - Depression [Recovered/Resolved]
  - Infection [Recovering/Resolving]
  - Decreased appetite [Recovered/Resolved]
  - Pneumonia bacterial [Recovering/Resolving]
  - Illness [Not Recovered/Not Resolved]
  - Pyrexia [Recovering/Resolving]
  - Immunodeficiency [Recovered/Resolved]
  - Decreased appetite [Recovering/Resolving]
  - Decreased appetite [Recovered/Resolved]
  - Influenza like illness [Recovered/Resolved]
  - Crohn^s disease [Not Recovered/Not Resolved]
  - Dyspnoea [Recovered/Resolved]
  - Asthenia [Recovered/Resolved]
  - Crying [Recovered/Resolved]
  - Dyspnoea [Recovering/Resolving]
  - Off label use [Recovered/Resolved]
  - Oxygen saturation decreased [Recovering/Resolving]

NARRATIVE: CASE EVENT DATE: 20211201
